FAERS Safety Report 24958922 (Version 3)
Quarter: 2025Q4

REPORT INFORMATION
  Report Type: Report from Study
  Country: EU (occurrence: EU)
  Receive Date: 20250212
  Receipt Date: 20251106
  Transmission Date: 20260118
  Serious: Yes (Hospitalization)
  Sender: TAKEDA
  Company Number: EU-JNJFOC-20250118682

PATIENT
  Age: 9 Decade
  Sex: Male
  Weight: 73 kg

DRUGS (3)
  1. BORTEZOMIB [Suspect]
     Active Substance: BORTEZOMIB
     Indication: Plasma cell myeloma
     Dosage: 2 MILLIGRAM
     Dates: start: 20200504, end: 20200831
  2. BORTEZOMIB [Suspect]
     Active Substance: BORTEZOMIB
     Dosage: 2.4 MILLIGRAM
  3. POMALIDOMIDE [Suspect]
     Active Substance: POMALIDOMIDE
     Indication: Plasma cell myeloma
     Dosage: 4 MILLIGRAM
     Dates: start: 20240725, end: 20241022

REACTIONS (3)
  - Renal disorder [Recovered/Resolved with Sequelae]
  - Blood urea increased [Unknown]
  - Blood creatinine increased [Unknown]

NARRATIVE: CASE EVENT DATE: 20241022
